FAERS Safety Report 16776516 (Version 1)
Quarter: 2019Q3

REPORT INFORMATION
  Report Type: Report from Study
  Country: ES (occurrence: ES)
  Receive Date: 20190905
  Receipt Date: 20190905
  Transmission Date: 20191005
  Serious: Yes (Death, Life-Threatening, Hospitalization)
  Sender: FDA-Public Use
  Company Number: ES-B.I. PHARMACEUTICALS,INC./RIDGEFIELD-2019-BI-034296

PATIENT
  Age: 70 Year
  Sex: Male

DRUGS (1)
  1. VARGATEF [Suspect]
     Active Substance: NINTEDANIB
     Indication: LUNG NEOPLASM MALIGNANT
     Route: 048
     Dates: start: 20180808, end: 20190806

REACTIONS (1)
  - Ischaemic stroke [Fatal]

NARRATIVE: CASE EVENT DATE: 20190806
